FAERS Safety Report 5145380-7 (Version None)
Quarter: 2006Q4

REPORT INFORMATION
  Report Type: 
  Country: None (occurrence: None)
  Receive Date: 20061031
  Receipt Date: 20061018
  Transmission Date: 20070319
  Serious: Yes (Hospitalization, Other)
  Sender: FDA-Public Use
  Company Number: A-US2006-13280

PATIENT
  Age: 60 Year
  Sex: Female
  Weight: 47.6 kg

DRUGS (19)
  1. TRACLEER [Suspect]
     Indication: PULMONARY HYPERTENSION
     Dosage: 125 MG, BID, ORAL
     Route: 048
     Dates: start: 20001001
  2. WARFARIN SODIUM [Concomitant]
  3. AMLODIPINE BESYLATE [Concomitant]
  4. SPIRONOLACTONE [Concomitant]
  5. LASIX [Concomitant]
  6. LEVOTHYROXINE SODIUM [Concomitant]
  7. NEXIUM [Concomitant]
  8. SENNA [Concomitant]
  9. DOCUSATE SODIUM [Concomitant]
  10. CLONAZEPAM [Concomitant]
  11. AMOXICILIN [Concomitant]
  12. MULTI-VITAMIN [Concomitant]
  13. CALCIUM [Concomitant]
  14. NAPROXEN SODIUM [Concomitant]
  15. MAGNESIUM                   ^PHARMAVIT^ (MAGNESIUM OXIDE) [Concomitant]
  16. ZINC [Concomitant]
  17. ARTIFICIAL TEARS [Concomitant]
  18. ERYTHROMYCIN [Concomitant]
  19. ESTROGENIC SUBSTANCE [Concomitant]

REACTIONS (55)
  - 5'NUCLEOTIDASE INCREASED [None]
  - ABDOMINAL WALL DISORDER [None]
  - ANAEMIA [None]
  - ANTIGLIADIN ANTIBODY POSITIVE [None]
  - ARTHRALGIA [None]
  - ASCITES [None]
  - ASTHENIA [None]
  - BACK PAIN [None]
  - BIOPSY LIVER ABNORMAL [None]
  - BLOOD COPPER INCREASED [None]
  - BLOOD COUNT ABNORMAL [None]
  - BLOOD CREATININE INCREASED [None]
  - CARDIAC FAILURE CONGESTIVE [None]
  - CELLULITIS [None]
  - CHEST DISCOMFORT [None]
  - COELIAC DISEASE [None]
  - CONDITION AGGRAVATED [None]
  - DIARRHOEA [None]
  - DRUG HYPERSENSITIVITY [None]
  - DRY EYE [None]
  - DYSPNOEA [None]
  - FAILURE TO THRIVE [None]
  - FATIGUE [None]
  - HEPATIC CIRRHOSIS [None]
  - HEPATIC CONGESTION [None]
  - HEPATIC FIBROSIS [None]
  - HEPATIC LESION [None]
  - HYDRONEPHROSIS [None]
  - HYPERSPLENISM [None]
  - LENTIGO [None]
  - LEUKOPENIA [None]
  - NEUROPATHY [None]
  - NUTRITIONAL CONDITION ABNORMAL [None]
  - OEDEMA PERIPHERAL [None]
  - PAIN IN EXTREMITY [None]
  - PANCREATITIS [None]
  - PETECHIAE [None]
  - PLEURITIC PAIN [None]
  - PORTAL VEIN THROMBOSIS [None]
  - POST PROCEDURAL COMPLICATION [None]
  - PULMONARY HYPERTENSION [None]
  - RADICULOPATHY [None]
  - RED BLOOD CELL SEDIMENTATION RATE INCREASED [None]
  - RENAL PAIN [None]
  - RETINAL VEIN OCCLUSION [None]
  - RHINORRHOEA [None]
  - SINUS HEADACHE [None]
  - SPLENIC VEIN THROMBOSIS [None]
  - SPLENOMEGALY [None]
  - TENDERNESS [None]
  - THROMBOCYTOPENIA [None]
  - THROMBOPHLEBITIS [None]
  - WEIGHT DECREASED [None]
  - WOUND [None]
  - WOUND INFECTION [None]
